FAERS Safety Report 7644788-5 (Version None)
Quarter: 2011Q3

REPORT INFORMATION
  Report Type: 
  Country: None (occurrence: None)
  Receive Date: 20110729
  Receipt Date: 20110713
  Transmission Date: 20111222
  Serious: Yes (Other)
  Sender: FDA-Public Use
  Company Number: US-VALEANT-2011VX002088

PATIENT
  Age: 64 Year
  Sex: Female
  Weight: 52 kg

DRUGS (2)
  1. DILANTIN [Suspect]
     Route: 048
     Dates: start: 19480101
  2. MYSOLINE [Suspect]
     Route: 048
     Dates: start: 19560101

REACTIONS (2)
  - OSTEOPENIA [None]
  - OSTEOPOROSIS [None]
